FAERS Safety Report 8713026 (Version 5)
Quarter: 2014Q3

REPORT INFORMATION
  Report Type: Report from Study
  Country: CA (occurrence: CA)
  Receive Date: 20120808
  Receipt Date: 20140731
  Transmission Date: 20150326
  Serious: Yes (Hospitalization)
  Sender: FDA-Public Use
  Company Number: CA-EISAI INC-E7389-02582-CLI-CA

PATIENT
  Age: 71 Year
  Sex: Female
  Weight: 93 kg

DRUGS (6)
  1. COLCHICINE. [Suspect]
     Active Substance: COLCHICINE
     Indication: GOUT
     Dosage: UNKNOWN
     Dates: start: 20120518
  2. AMLODIPINE [Concomitant]
     Active Substance: AMLODIPINE BESYLATE
     Indication: HYPERTENSION
  3. HYDROXYCHLOROQUINE [Concomitant]
     Active Substance: HYDROXYCHLOROQUINE
     Indication: RHEUMATOID ARTHRITIS
  4. EZETIMIBE. [Concomitant]
     Active Substance: EZETIMIBE
     Indication: DYSLIPIDAEMIA
  5. VENLAFAXINE [Concomitant]
     Active Substance: VENLAFAXINE HYDROCHLORIDE
     Indication: DEPRESSION
  6. ERIBULIN [Suspect]
     Active Substance: ERIBULIN
     Indication: BREAST CANCER METASTATIC
     Dosage: 1.4 MG/M2
     Route: 041
     Dates: start: 20120530, end: 20120606

REACTIONS (4)
  - Anaemia [Recovered/Resolved with Sequelae]
  - Pneumonia [Recovered/Resolved]
  - Left ventricular dysfunction [Recovered/Resolved with Sequelae]
  - Neutropenia [Recovered/Resolved]

NARRATIVE: CASE EVENT DATE: 20120611
